FAERS Safety Report 11760630 (Version 1)
Quarter: 2015Q4

REPORT INFORMATION
  Report Type: Spontaneous
  Country: US (occurrence: US)
  Receive Date: 20151120
  Receipt Date: 20151120
  Transmission Date: 20160304
  Serious: No
  Sender: FDA-Public Use
  Company Number: US-ELI_LILLY_AND_COMPANY-US201209007053

PATIENT
  Age: 53 Year
  Sex: Female

DRUGS (4)
  1. FORTEO [Suspect]
     Active Substance: TERIPARATIDE
     Dosage: 20 UG, QD
     Route: 065
     Dates: end: 20120930
  2. ESTROGENS [Concomitant]
     Active Substance: ESTROGENS
  3. FORTEO [Suspect]
     Active Substance: TERIPARATIDE
     Indication: OSTEOPOROSIS
     Dosage: 20 UG, QD
     Route: 065
     Dates: start: 20120912
  4. CALCIUM [Concomitant]
     Active Substance: CALCIUM

REACTIONS (27)
  - Fluid retention [Unknown]
  - Burning sensation [Not Recovered/Not Resolved]
  - Aphonia [Recovered/Resolved]
  - Cardiac flutter [Unknown]
  - Cardiac discomfort [Not Recovered/Not Resolved]
  - Contusion [Unknown]
  - Fatigue [Unknown]
  - Feeling abnormal [Unknown]
  - Abdominal pain [Not Recovered/Not Resolved]
  - Fear [Unknown]
  - Joint swelling [Not Recovered/Not Resolved]
  - Painful defaecation [Unknown]
  - Arthropathy [Unknown]
  - Abdominal distension [Not Recovered/Not Resolved]
  - Weight decreased [Recovered/Resolved]
  - Discomfort [Not Recovered/Not Resolved]
  - Gastrointestinal disorder [Unknown]
  - Abdominal discomfort [Unknown]
  - Arthralgia [Not Recovered/Not Resolved]
  - Constipation [Unknown]
  - Night sweats [Unknown]
  - Injection site bruising [Unknown]
  - Varicose vein [Unknown]
  - Musculoskeletal disorder [Unknown]
  - Insomnia [Recovering/Resolving]
  - Chest pain [Not Recovered/Not Resolved]
  - Asthenia [Recovering/Resolving]

NARRATIVE: CASE EVENT DATE: 2012
